FAERS Safety Report 8960982 (Version 2)
Quarter: 2013Q1

REPORT INFORMATION
  Report Type: Spontaneous
  Country: CA (occurrence: CA)
  Receive Date: 20121213
  Receipt Date: 20130205
  Transmission Date: 20140127
  Serious: Yes (Death, Hospitalization, Other)
  Sender: FDA-Public Use
  Company Number: PHHY2011CA58094

PATIENT
  Sex: Female

DRUGS (1)
  1. SANDOSTATIN LAR [Suspect]
     Indication: ACROMEGALY
     Dosage: 20 MG, EVERY 4 WEEKS
     Route: 030
     Dates: start: 20070801, end: 20130103

REACTIONS (7)
  - Myocardial infarction [Fatal]
  - Post procedural infection [Unknown]
  - Cholecystitis [Recovered/Resolved]
  - Pancreatitis [Unknown]
  - Cholelithiasis [Recovered/Resolved]
  - Scar [Unknown]
  - Anxiety [Unknown]
